FAERS Safety Report 9701035 (Version 1)
Quarter: 2013Q4

REPORT INFORMATION
  Report Type: Spontaneous
  Country: US (occurrence: None)
  Receive Date: 20131120
  Receipt Date: 20131120
  Transmission Date: 20140711
  Serious: Yes (Hospitalization)
  Sender: FDA-Public Use
  Company Number: None

PATIENT
  Age: 66 None
  Sex: 0
  Weight: 59.42 kg

DRUGS (2)
  1. TOVIAZ [Suspect]
     Indication: CYSTITIS INTERSTITIAL
     Dates: start: 20130325
  2. TOVIAZ [Suspect]
     Indication: POLLAKIURIA
     Dates: start: 20130325

REACTIONS (2)
  - Urinary retention [None]
  - Drug effect increased [None]
